FAERS Safety Report 11996481 (Version 2)
Quarter: 2016Q3

REPORT INFORMATION
  Report Type: Spontaneous
  Country: US (occurrence: US)
  Receive Date: 20160203
  Receipt Date: 20160725
  Transmission Date: 20161109
  Serious: No
  Sender: FDA-Public Use
  Company Number: US-GLAXOSMITHKLINE-US2016GSK010915

PATIENT
  Age: 62 Year
  Sex: Female

DRUGS (2)
  1. TANZEUM [Suspect]
     Active Substance: ALBIGLUTIDE
     Indication: WEIGHT DECREASED
     Dosage: 30 MG, WE
     Route: 042
     Dates: start: 20160121
  2. TANZEUM [Suspect]
     Active Substance: ALBIGLUTIDE
     Indication: TYPE 2 DIABETES MELLITUS
     Dosage: 50 MG, WE
     Route: 042
     Dates: start: 201506

REACTIONS (16)
  - Off label use [Unknown]
  - Decreased appetite [Unknown]
  - Sluggishness [Unknown]
  - Malaise [Unknown]
  - Activities of daily living impaired [Unknown]
  - Disturbance in attention [Unknown]
  - Accidental exposure to product [Unknown]
  - Visual acuity reduced [Not Recovered/Not Resolved]
  - Weight decreased [Unknown]
  - Nausea [Unknown]
  - Dysuria [Unknown]
  - Pain [Unknown]
  - Device leakage [Unknown]
  - Underdose [Unknown]
  - Urinary tract infection [Unknown]
  - Device use error [Unknown]

NARRATIVE: CASE EVENT DATE: 2015
